FAERS Safety Report 8734503 (Version 2)
Quarter: 2015Q2

REPORT INFORMATION
  Report Type: Report from Study
  Country: US (occurrence: US)
  Receive Date: 20120821
  Receipt Date: 20150407
  Transmission Date: 20150821
  Serious: Yes (Death, Other)
  Sender: FDA-Public Use
  Company Number: US-ROCHE-1100515

PATIENT
  Sex: Male

DRUGS (6)
  1. ACTIVASE [Suspect]
     Active Substance: ALTEPLASE
     Indication: MYOCARDIAL INFARCTION
     Route: 065
     Dates: start: 19930314
  2. SODIUM CHLORIDE. [Concomitant]
     Active Substance: SODIUM CHLORIDE
  3. LIDOCAINE. [Concomitant]
     Active Substance: LIDOCAINE
  4. NITROGLYCERINE [Concomitant]
     Active Substance: NITROGLYCERIN
     Route: 065
  5. DOPAMIN [Concomitant]
     Active Substance: DOPAMINE HYDROCHLORIDE
  6. ATROPINE [Concomitant]
     Active Substance: ATROPINE

REACTIONS (9)
  - Cardiac arrest [Fatal]
  - No therapeutic response [Unknown]
  - Hypotension [Unknown]
  - Cardiogenic shock [Fatal]
  - Ventricular tachycardia [Unknown]
  - Nausea [Unknown]
  - Vomiting [Unknown]
  - Ventricular fibrillation [Fatal]
  - Hypoxia [Unknown]
